FAERS Safety Report 5072863-0 (Version None)
Quarter: 2006Q3

REPORT INFORMATION
  Report Type: 
  Country: None (occurrence: None)
  Receive Date: 20060802
  Receipt Date: 20060724
  Transmission Date: 20061208
  Serious: Yes (Other)
  Sender: FDA-Public Use
  Company Number: TCI2006A02260

PATIENT
  Age: 76 Year
  Sex: Female

DRUGS (5)
  1. LANSOPRAZOLE [Suspect]
     Indication: REFLUX OESOPHAGITIS
     Dosage: PER ORAL
     Route: 048
     Dates: start: 20060525, end: 20060529
  2. RHEUMATREX [Concomitant]
  3. PREDNISOLONE [Concomitant]
  4. LEVOFLOXACIN [Concomitant]
  5. FUNGIZONE [Concomitant]

REACTIONS (1)
  - PNEUMOCYSTIS JIROVECI PNEUMONIA [None]
